FAERS Safety Report 15033756 (Version 2)
Quarter: 2018Q4

REPORT INFORMATION
  Report Type: Spontaneous
  Country: US (occurrence: US)
  Receive Date: 20180619
  Receipt Date: 20181214
  Transmission Date: 20190204
  Serious: Yes (Hospitalization, Other)
  Sender: FDA-Public Use
  Company Number: US-ASTRAZENECA-2018SE78054

PATIENT
  Age: 18341 Day
  Sex: Female
  Weight: 113.4 kg

DRUGS (37)
  1. NEXIUM [Suspect]
     Active Substance: ESOMEPRAZOLE MAGNESIUM
     Indication: GASTROOESOPHAGEAL REFLUX DISEASE
     Dosage: GENERIC
     Route: 065
     Dates: start: 20170331
  2. NEXIUM [Suspect]
     Active Substance: ESOMEPRAZOLE MAGNESIUM
     Indication: GASTROOESOPHAGEAL REFLUX DISEASE
     Route: 048
     Dates: start: 20130802, end: 20170130
  3. PRILOSEC [Suspect]
     Active Substance: OMEPRAZOLE MAGNESIUM
     Indication: GASTROOESOPHAGEAL REFLUX DISEASE
     Route: 048
     Dates: start: 2007, end: 2012
  4. HYDROXYZINE [Concomitant]
     Active Substance: HYDROXYZINE HYDROCHLORIDE
     Indication: ANXIETY DISORDER
     Dates: start: 2008
  5. SERTRALINE [Concomitant]
     Active Substance: SERTRALINE HYDROCHLORIDE
     Indication: ANTIDEPRESSANT THERAPY
     Dates: start: 2015
  6. ATROVENT [Concomitant]
     Active Substance: IPRATROPIUM BROMIDE
  7. ESTRADIOL. [Concomitant]
     Active Substance: ESTRADIOL
  8. RANITIDINE. [Concomitant]
     Active Substance: RANITIDINE
  9. ATIVAN [Concomitant]
     Active Substance: LORAZEPAM
  10. DIVALPROEX [Concomitant]
     Active Substance: DIVALPROEX SODIUM
     Indication: ANTIPSYCHOTIC DRUG LEVEL
     Dates: start: 2012
  11. GABAPENTIN. [Concomitant]
     Active Substance: GABAPENTIN
  12. SIMVASTATIN. [Concomitant]
     Active Substance: SIMVASTATIN
  13. QUETIAPINE FUMARATE. [Concomitant]
     Active Substance: QUETIAPINE FUMARATE
  14. CLOBETASOL [Concomitant]
     Active Substance: CLOBETASOL
  15. NEXIUM [Suspect]
     Active Substance: ESOMEPRAZOLE MAGNESIUM
     Indication: GASTROOESOPHAGEAL REFLUX DISEASE
     Route: 048
     Dates: start: 20070315
  16. PROAIR HFA [Concomitant]
     Active Substance: ALBUTEROL SULFATE
  17. ZITHROMAX [Concomitant]
     Active Substance: AZITHROMYCIN DIHYDRATE
     Indication: URINARY TRACT INFECTION
  18. TOPIRAMATE. [Concomitant]
     Active Substance: TOPIRAMATE
     Indication: MIGRAINE
     Dates: start: 2015
  19. LEVOTHYROXINE. [Concomitant]
     Active Substance: LEVOTHYROXINE
  20. AMOXICILLIN. [Concomitant]
     Active Substance: AMOXICILLIN
  21. SEROQUEL [Concomitant]
     Active Substance: QUETIAPINE FUMARATE
  22. OLANZAPINE. [Concomitant]
     Active Substance: OLANZAPINE
  23. VISTARIL [Concomitant]
     Active Substance: HYDROXYZINE PAMOATE
  24. ZOLOFT [Concomitant]
     Active Substance: SERTRALINE HYDROCHLORIDE
  25. MORPHINE [Concomitant]
     Active Substance: MORPHINE
  26. PREDNISONE. [Concomitant]
     Active Substance: PREDNISONE
  27. DEPAKOTE [Concomitant]
     Active Substance: DIVALPROEX SODIUM
  28. PRILOSEC [Suspect]
     Active Substance: OMEPRAZOLE MAGNESIUM
     Indication: GASTROOESOPHAGEAL REFLUX DISEASE
     Dosage: GENERIC
     Route: 065
     Dates: start: 20120530, end: 20130624
  29. DIAZEPAM. [Concomitant]
     Active Substance: DIAZEPAM
  30. PREGABALIN. [Concomitant]
     Active Substance: PREGABALIN
  31. IBUPROFEN. [Concomitant]
     Active Substance: IBUPROFEN
  32. MIRTAZAPINE. [Concomitant]
     Active Substance: MIRTAZAPINE
     Indication: ANTIDEPRESSANT THERAPY
     Dates: start: 2017
  33. OLANZAPINE. [Concomitant]
     Active Substance: OLANZAPINE
     Indication: ANTIDEPRESSANT THERAPY
     Dates: start: 2017
  34. SUMATRIPTAN. [Concomitant]
     Active Substance: SUMATRIPTAN
     Indication: BLOOD CHOLESTEROL ABNORMAL
     Dates: start: 2012
  35. CLOTRIMAZOL [Concomitant]
     Active Substance: CLOTRIMAZOLE
  36. PRAZOSIN. [Concomitant]
     Active Substance: PRAZOSIN
  37. PRAZOSIN. [Concomitant]
     Active Substance: PRAZOSIN

REACTIONS (4)
  - Chronic kidney disease [Not Recovered/Not Resolved]
  - Renal impairment [Unknown]
  - Renal failure [Unknown]
  - Nephropathy [Unknown]

NARRATIVE: CASE EVENT DATE: 20160202
